FAERS Safety Report 10265188 (Version 1)
Quarter: 2014Q2

REPORT INFORMATION
  Report Type: Spontaneous
  Country: US (occurrence: None)
  Receive Date: 20140625
  Receipt Date: 20140625
  Transmission Date: 20141212
  Serious: Yes (Hospitalization)
  Sender: FDA-Public Use
  Company Number: None

PATIENT
  Age: 92 Year
  Sex: Male
  Weight: 73.6 kg

DRUGS (3)
  1. CYCLOPOSPHAMIDE (CYCLOPHOSPHAMIDE) [Suspect]
     Dates: start: 20140609
  2. DOXORUBICIN HYDROCHLORIDE [Suspect]
     Dates: start: 20140609
  3. RITUXIMAB  (MOAB C2B8 ANTI CD20, CHIMERIC) [Suspect]
     Dates: start: 20140609

REACTIONS (2)
  - White blood cell count decreased [None]
  - Lymphocyte count decreased [None]
